FAERS Safety Report 10261534 (Version 1)
Quarter: 2014Q2

REPORT INFORMATION
  Report Type: Spontaneous
  Country: FR (occurrence: None)
  Receive Date: 20140623
  Receipt Date: 20140623
  Transmission Date: 20141212
  Serious: Yes (Hospitalization)
  Sender: FDA-Public Use
  Company Number: FR-016056

PATIENT
  Age: 77 Year
  Sex: Male

DRUGS (3)
  1. FIRMAGON /01764801/ (FIRMAGON) (NOT SPECIFIED) [Suspect]
     Indication: PROSTATE CANCER
     Route: 058
     Dates: start: 201401, end: 20140307
  2. PREVISCAN /00789001/ [Concomitant]
  3. TRIATEC /00885601/ [Concomitant]

REACTIONS (12)
  - Rash maculo-papular [None]
  - Rash pustular [None]
  - Pruritus [None]
  - Asthenia [None]
  - Hypotension [None]
  - Herpes simplex serology positive [None]
  - Inflammation [None]
  - Eosinophilia [None]
  - Leukocytosis [None]
  - Toxic skin eruption [None]
  - Neutrophilic dermatosis [None]
  - Erythema [None]
